FAERS Safety Report 22536485 (Version 1)
Quarter: 2023Q2

REPORT INFORMATION
  Report Type: Spontaneous
  Country: US (occurrence: US)
  Receive Date: 20230608
  Receipt Date: 20230608
  Transmission Date: 20230722
  Serious: No
  Sender: FDA-Public Use
  Company Number: US-GLAXOSMITHKLINE-USCH2023027330

PATIENT
  Age: 81 Year
  Sex: Male

DRUGS (1)
  1. FLONASE SENSIMIST ALLERGY RELIEF [Suspect]
     Active Substance: FLUTICASONE FUROATE
     Indication: Product used for unknown indication
     Dosage: UNK
     Dates: start: 20230527, end: 20230606

REACTIONS (2)
  - Aphonia [Recovering/Resolving]
  - Vocal cord dysfunction [Recovering/Resolving]

NARRATIVE: CASE EVENT DATE: 20230602
